FAERS Safety Report 18914202 (Version 1)
Quarter: 2021Q1

REPORT INFORMATION
  Report Type: Spontaneous
  Country: US (occurrence: US)
  Receive Date: 20210218
  Receipt Date: 20210218
  Transmission Date: 20210420
  Serious: No
  Sender: FDA-Public Use
  Company Number: None

PATIENT
  Sex: Male

DRUGS (2)
  1. LEVETIRACETAM. [Suspect]
     Active Substance: LEVETIRACETAM
     Indication: EPILEPSY
     Dosage: ?          OTHER FREQUENCY:AM; 1500 G IN AM 500 MG  IN PM?
  2. LACOSAMIDE. [Suspect]
     Active Substance: LACOSAMIDE

REACTIONS (2)
  - Seizure [None]
  - Therapeutic response changed [None]
